FAERS Safety Report 24390887 (Version 1)
Quarter: 2024Q4

REPORT INFORMATION
  Report Type: Spontaneous
  Country: US (occurrence: US)
  Receive Date: 20241003
  Receipt Date: 20241003
  Transmission Date: 20250115
  Serious: Yes (Other)
  Sender: ALKEM
  Company Number: US-ALKEM LABORATORIES LIMITED-US-ALKEM-2024-18225

PATIENT
  Age: 6 Decade
  Sex: Female

DRUGS (6)
  1. CLOPIDOGREL [Suspect]
     Active Substance: CLOPIDOGREL BISULFATE
     Indication: Intracranial aneurysm
     Dosage: 75 MILLIGRAM, QD
     Route: 048
  2. CLOPIDOGREL [Suspect]
     Active Substance: CLOPIDOGREL BISULFATE
     Dosage: 300 MILLIGRAM
     Route: 048
  3. ASPIRIN [Suspect]
     Active Substance: ASPIRIN
     Indication: Intracranial aneurysm
     Dosage: 325 MILLIGRAM, QD
     Route: 048
  4. ASPIRIN [Suspect]
     Active Substance: ASPIRIN
     Dosage: 81 MILLIGRAM, QD
     Route: 048
  5. PRASUGREL [Suspect]
     Active Substance: PRASUGREL
     Indication: Intracranial aneurysm
     Dosage: 60 MILLIGRAM
     Route: 048
  6. PRASUGREL [Suspect]
     Active Substance: PRASUGREL
     Dosage: 10 MILLIGRAM (POST-PROCEDURE DAY 1-2)
     Route: 048

REACTIONS (2)
  - Cerebellar haemorrhage [Unknown]
  - Drug resistance [Unknown]
